FAERS Safety Report 4898862-7 (Version None)
Quarter: 2006Q1

REPORT INFORMATION
  Report Type: 
  Country: None (occurrence: None)
  Receive Date: 20060104
  Receipt Date: 20050909
  Transmission Date: 20060701
  Serious: Yes (Disabling)
  Sender: FDA-Public Use
  Company Number: A03200502836

PATIENT
  Age: 51 Year
  Sex: Female
  Weight: 83.9154 kg

DRUGS (8)
  1. ELOXATIN [Suspect]
     Indication: COLORECTAL CANCER
     Dosage: INTRAVENOUS NOS
     Route: 042
     Dates: start: 20050831, end: 20050831
  2. LEUCOVORIN CALCIUM [Concomitant]
  3. FLUOROURACIL [Concomitant]
  4. BEVACIZUMAB [Concomitant]
  5. PALONOSETRON HYDROCHLORIDE [Concomitant]
  6. DEXAMETHASONE [Concomitant]
  7. MAGNESIUM SULFATE [Concomitant]
  8. CALCIUM GLUCONATE [Concomitant]

REACTIONS (4)
  - ABDOMINAL PAIN [None]
  - FLUSHING [None]
  - HYPERHIDROSIS [None]
  - NON-CARDIAC CHEST PAIN [None]
